FAERS Safety Report 13502502 (Version 3)
Quarter: 2017Q2

REPORT INFORMATION
  Report Type: Report from Study
  Country: IT (occurrence: IT)
  Receive Date: 20170502
  Receipt Date: 20170622
  Transmission Date: 20170830
  Serious: Yes (Hospitalization)
  Sender: FDA-Public Use
  Company Number: IT-ROCHE-1926954

PATIENT
  Age: 77 Year
  Sex: Female

DRUGS (10)
  1. BLINDED OLAPARIB [Suspect]
     Active Substance: OLAPARIB
     Indication: OVARIAN CANCER
     Dosage: DATE OF LAST DOSE PRIOR TO SAE: 25/APR/2017
     Route: 065
     Dates: start: 20161121
  2. OMEPRAZOLE. [Concomitant]
     Active Substance: OMEPRAZOLE
     Route: 048
  3. PLAUNAZIDE [Concomitant]
     Active Substance: HYDROCHLOROTHIAZIDE\OLMESARTAN MEDOXOMIL
     Route: 048
  4. ASA [Concomitant]
     Active Substance: ASPIRIN
     Route: 048
  5. LYRICA [Concomitant]
     Active Substance: PREGABALIN
     Route: 048
  6. PANTOPRAZOLE [Concomitant]
     Active Substance: PANTOPRAZOLE
     Route: 048
  7. BEVACIZUMAB [Suspect]
     Active Substance: BEVACIZUMAB
     Indication: OVARIAN CANCER
     Dosage: DATE OF LAST DOSE PRIOR TO SAE: 20/APR/2017 (15 MG/KG)?DISCONTINUED ON 20/APR/2017 DUE TO INTESTINAL
     Route: 065
     Dates: start: 20161121, end: 20170420
  8. BLINDED OLAPARIB [Suspect]
     Active Substance: OLAPARIB
     Dosage: DOSE REDUCED
     Route: 065
     Dates: start: 20170511
  9. BISOPROLOL [Concomitant]
     Active Substance: BISOPROLOL
     Route: 048
  10. PROVISACOR [Concomitant]
     Active Substance: ROSUVASTATIN
     Route: 048

REACTIONS (2)
  - Intestinal haemorrhage [Recovered/Resolved]
  - Anaemia [Recovered/Resolved]

NARRATIVE: CASE EVENT DATE: 20170427
